FAERS Safety Report 16504873 (Version 1)
Quarter: 2019Q3

REPORT INFORMATION
  Report Type: Spontaneous
  Country: US (occurrence: US)
  Receive Date: 20190701
  Receipt Date: 20190701
  Transmission Date: 20191004
  Serious: No
  Sender: FDA-Public Use
  Company Number: US-PFM-2018-10751

PATIENT

DRUGS (2)
  1. HEMANGEOL [Suspect]
     Active Substance: PROPRANOLOL HYDROCHLORIDE
     Indication: OFF LABEL USE
  2. HEMANGEOL [Suspect]
     Active Substance: PROPRANOLOL HYDROCHLORIDE
     Indication: CONGENITAL ANOMALY
     Dosage: 2 ML, BID (2/DAY)
     Route: 048
     Dates: start: 201805

REACTIONS (3)
  - Irritability [Recovered/Resolved]
  - Off label use [Unknown]
  - Product use in unapproved indication [Unknown]
